FAERS Safety Report 9266498 (Version 2)
Quarter: 2013Q2

REPORT INFORMATION
  Report Type: Spontaneous
  Country: ES (occurrence: ES)
  Receive Date: 20130502
  Receipt Date: 20130502
  Transmission Date: 20140414
  Serious: Yes (Hospitalization)
  Sender: FDA-Public Use
  Company Number: ES-009507513-1304ESP006444

PATIENT
  Age: 9 Month
  Sex: Male

DRUGS (4)
  1. SINGULAIR 4 MG GRANULADO [Suspect]
     Indication: BRONCHITIS
     Dosage: 4 MG, QD
     Route: 048
     Dates: start: 20121024, end: 20121228
  2. SINGULAIR 4 MG GRANULADO [Suspect]
     Dosage: UNK
     Route: 048
  3. BUDESONIDE [Concomitant]
     Indication: BRONCHITIS
     Dosage: UNK
     Route: 065
     Dates: start: 201210, end: 20121228
  4. BUDESONIDE [Concomitant]
     Dosage: UNK

REACTIONS (1)
  - Pulmonary tuberculosis [Recovering/Resolving]
